FAERS Safety Report 15245560 (Version 1)
Quarter: 2018Q3

REPORT INFORMATION
  Report Type: Spontaneous
  Country: US (occurrence: US)
  Receive Date: 20180713
  Receipt Date: 20180713
  Transmission Date: 20181010
  Serious: Yes (Disabling)
  Sender: FDA-Public Use
  Company Number: None

PATIENT
  Age: 62 Year
  Sex: Female
  Weight: 73.03 kg

DRUGS (14)
  1. FUROSIME [Concomitant]
  2. FUROSIME [Concomitant]
  3. HALOPERIDOL. [Concomitant]
     Active Substance: HALOPERIDOL
  4. LEVOTHYROXINE POTASIN [Concomitant]
  5. MELATONIN [Concomitant]
     Active Substance: MELATONIN
  6. PRALUENT [Suspect]
     Active Substance: ALIROCUMAB
     Dosage: ?          QUANTITY:1 DF DOSAGE FORM;?
     Dates: start: 20180517, end: 20180517
  7. AMLODIPINE [Concomitant]
     Active Substance: AMLODIPINE BESYLATE
  8. VALIUM [Concomitant]
     Active Substance: DIAZEPAM
  9. LAMOTRIGINE. [Concomitant]
     Active Substance: LAMOTRIGINE
  10. MAGNESIUM [Concomitant]
     Active Substance: MAGNESIUM
  11. POTASSIUM [Concomitant]
     Active Substance: POTASSIUM
  12. BUSPIRONE [Concomitant]
     Active Substance: BUSPIRONE HYDROCHLORIDE
  13. VITAMIN B12 [Concomitant]
     Active Substance: CYANOCOBALAMIN
  14. ZYRTEC [Concomitant]
     Active Substance: CETIRIZINE HYDROCHLORIDE

REACTIONS (1)
  - Headache [None]

NARRATIVE: CASE EVENT DATE: 20180520
